FAERS Safety Report 16997945 (Version 1)
Quarter: 2019Q4

REPORT INFORMATION
  Report Type: Spontaneous
  Country: NL (occurrence: NL)
  Receive Date: 20191106
  Receipt Date: 20191106
  Transmission Date: 20200122
  Serious: Yes (Other)
  Sender: FDA-Public Use
  Company Number: NL-ACCORD-159657

PATIENT
  Age: 7 Year
  Sex: Male

DRUGS (5)
  1. CILASTATIN/IMIPENEM [Suspect]
     Active Substance: CILASTATIN SODIUM\IMIPENEM
     Indication: MYCOBACTERIUM ABSCESSUS INFECTION
     Dosage: 60/60 MG/KG/DAY IN 2-4 DOSES, DILUTION OF POWDER FORMULATIONS
     Route: 042
  2. SODIUM CHLORIDE. [Concomitant]
     Active Substance: SODIUM CHLORIDE
     Dosage: STRENGTH: 0.9%
  3. TIGECYCLINE. [Suspect]
     Active Substance: TIGECYCLINE
     Indication: MYCOBACTERIUM ABSCESSUS INFECTION
     Dosage: IN 2 DOSES, DILUTION OF POWDER FORMULATIONS
     Route: 042
  4. CILASTATIN/IMIPENEM [Suspect]
     Active Substance: CILASTATIN SODIUM\IMIPENEM
     Indication: MASTOIDITIS
     Dosage: 60/60 MG/KG/DAY IN 2-4 DOSES, DILUTION OF POWDER FORMULATIONS
     Route: 042
  5. TIGECYCLINE. [Suspect]
     Active Substance: TIGECYCLINE
     Indication: MASTOIDITIS
     Dosage: IN 2 DOSES, DILUTION OF POWDER FORMULATIONS
     Route: 042

REACTIONS (2)
  - Hepatotoxicity [Unknown]
  - Hypertriglyceridaemia [Recovered/Resolved]
